FAERS Safety Report 16851253 (Version 8)
Quarter: 2020Q1

REPORT INFORMATION
  Report Type: Spontaneous
  Country: US (occurrence: US)
  Receive Date: 20190925
  Receipt Date: 20200312
  Transmission Date: 20200409
  Serious: Yes (Other)
  Sender: FDA-Public Use
  Company Number: US-PFIZER INC-2019410560

PATIENT
  Age: 47 Year
  Sex: Male
  Weight: 81.63 kg

DRUGS (5)
  1. LYRICA CR [Suspect]
     Active Substance: PREGABALIN
     Dosage: 330MG 1 TABLET DAILY
     Route: 048
  2. LYRICA CR [Suspect]
     Active Substance: PREGABALIN
     Dosage: 660 MG, DAILY [2 TAB BY MOUTH DAILY]
     Route: 048
  3. LYRICA CR [Suspect]
     Active Substance: PREGABALIN
     Indication: NEUROPATHY PERIPHERAL
     Dosage: UNK (TAKING HALF OF WHAT HE WAS TAKING BEFORE)
  4. LYRICA CR [Suspect]
     Active Substance: PREGABALIN
     Indication: FIBROMYALGIA
     Dosage: 330 MG, 1X/DAY
     Route: 048
     Dates: start: 201904
  5. LYRICA CR [Suspect]
     Active Substance: PREGABALIN
     Dosage: 660 MG, 1X/DAY (2 DF, 1X DAILY)
     Route: 048

REACTIONS (12)
  - Nasopharyngitis [Unknown]
  - Malaise [Unknown]
  - Dysgraphia [Unknown]
  - Drug ineffective [Not Recovered/Not Resolved]
  - Apathy [Not Recovered/Not Resolved]
  - Fibromyalgia [Not Recovered/Not Resolved]
  - Intentional product use issue [Unknown]
  - Influenza like illness [Unknown]
  - Product dispensing error [Unknown]
  - Fatigue [Not Recovered/Not Resolved]
  - Neuropathy peripheral [Not Recovered/Not Resolved]
  - Depression [Unknown]

NARRATIVE: CASE EVENT DATE: 2019
